FAERS Safety Report 20246385 (Version 1)
Quarter: 2021Q4

REPORT INFORMATION
  Report Type: Spontaneous
  Country: US (occurrence: None)
  Receive Date: 20211228
  Receipt Date: 20211228
  Transmission Date: 20220303
  Serious: Yes (Hospitalization)
  Sender: FDA-Public Use
  Company Number: None

PATIENT
  Age: 25 Month
  Sex: Male
  Weight: 12.6 kg

DRUGS (1)
  1. SKYTROFA [Suspect]
     Active Substance: LONAPEGSOMATROPIN-TCGD
     Indication: Growth hormone deficiency
     Dosage: FREQUENCY : WEEKLY;?
     Route: 058
     Dates: start: 20211216, end: 20211223

REACTIONS (8)
  - Diarrhoea [None]
  - Vomiting [None]
  - Influenza A virus test positive [None]
  - Dehydration [None]
  - Gastroenteritis [None]
  - Human rhinovirus test positive [None]
  - Human metapneumovirus test positive [None]
  - Enterovirus test positive [None]

NARRATIVE: CASE EVENT DATE: 20211227
